FAERS Safety Report 5932259-3 (Version None)
Quarter: 2008Q4

REPORT INFORMATION
  Report Type: 
  Country: None (occurrence: None)
  Receive Date: 20081023
  Receipt Date: 20060531
  Transmission Date: 20090506
  Serious: Yes (Other)
  Sender: FDA-Public Use
  Company Number: 2006AL002078

PATIENT
  Age: 21 Year
  Sex: Female

DRUGS (8)
  1. FLUOXETINE [Suspect]
     Dates: start: 20060419, end: 20060419
  2. DIAZEPAM [Concomitant]
  3. HYDROXYZINE [Concomitant]
  4. CODEINE SUL TAB [Concomitant]
  5. COFFEIN [Concomitant]
  6. ACETYLSALICYLIC ACID SRT [Concomitant]
  7. IBUPRIFEN [Concomitant]
  8. ALCOHOL [Concomitant]

REACTIONS (5)
  - ABNORMAL BEHAVIOUR [None]
  - ALCOHOL USE [None]
  - LOSS OF CONSCIOUSNESS [None]
  - THERAPEUTIC AGENT TOXICITY [None]
  - VOMITING [None]
